FAERS Safety Report 12832958 (Version 1)
Quarter: 2016Q4

REPORT INFORMATION
  Report Type: Spontaneous
  Country: US (occurrence: US)
  Receive Date: 20161010
  Receipt Date: 20161010
  Transmission Date: 20170207
  Serious: Yes (Other)
  Sender: FDA-Public Use
  Company Number: US-SA-2016SA181357

PATIENT
  Age: 70 Year
  Sex: Male

DRUGS (5)
  1. LANTUS SOLOSTAR [Suspect]
     Active Substance: INSULIN GLARGINE
     Indication: TYPE 2 DIABETES MELLITUS
     Dosage: DOSE:80 UNIT(S)
     Route: 065
     Dates: end: 201604
  2. SOLOSTAR [Concomitant]
     Active Substance: DEVICE
     Indication: TYPE 2 DIABETES MELLITUS
     Dates: end: 201604
  3. TOUJEO [Concomitant]
     Active Substance: INSULIN GLARGINE
  4. APIDRA [Concomitant]
     Active Substance: INSULIN GLULISINE
     Dosage: DOSE: 14 UNITS TWICE A DAY AM PM MEALS DOSE:14 UNIT(S)
  5. SOLOSTAR [Concomitant]
     Active Substance: DEVICE

REACTIONS (2)
  - Back pain [Unknown]
  - Arthropathy [Unknown]
